FAERS Safety Report 7641263-9 (Version None)
Quarter: 2011Q3

REPORT INFORMATION
  Report Type: 
  Country: None (occurrence: None)
  Receive Date: 20110728
  Receipt Date: 20110720
  Transmission Date: 20111222
  Serious: Yes (Death, Hospitalization, Disabling)
  Sender: FDA-Public Use
  Company Number: JP-JNJFOC-20110701564

PATIENT
  Age: 56 Year
  Sex: Female

DRUGS (10)
  1. SEPAZON [Concomitant]
     Route: 048
  2. RISPERAL CONSTA [Suspect]
     Indication: PRODUCT USED FOR UNKNOWN INDICATION
     Route: 030
  3. INVEGA [Suspect]
     Indication: DELUSION
     Route: 048
     Dates: start: 20110224, end: 20110313
  4. ESTAZOLAM [Concomitant]
     Route: 048
  5. ATARAX [Concomitant]
     Route: 048
  6. INVEGA [Suspect]
     Route: 048
     Dates: start: 20110314, end: 20110416
  7. PROMAZINE HYDROCHLORIDE [Suspect]
     Indication: PRODUCT USED FOR UNKNOWN INDICATION
     Route: 048
  8. INVEGA [Suspect]
     Indication: HALLUCINATION, AUDITORY
     Route: 048
     Dates: start: 20110224, end: 20110313
  9. INVEGA [Suspect]
     Route: 048
     Dates: start: 20110314, end: 20110416
  10. RHYTHMY [Concomitant]
     Route: 048

REACTIONS (4)
  - PARKINSONISM [None]
  - ENTEROCOLITIS INFECTIOUS [None]
  - NERVE BLOCK [None]
  - HYPOGLYCAEMIA [None]
